FAERS Safety Report 8790716 (Version 1)
Quarter: 2012Q4

REPORT INFORMATION
  Report Type: Spontaneous
  Country: US (occurrence: None)
  Receive Date: 20120912
  Receipt Date: 20120912
  Transmission Date: 20130627
  Serious: Yes (Hospitalization)
  Sender: FDA-Public Use
  Company Number: None

PATIENT
  Age: 50 Year
  Sex: Male
  Weight: 75 kg

DRUGS (1)
  1. PIPERACILLIN/TAZOBACTAM STRAGEN [Suspect]
     Indication: PNEUMONIA
     Route: 042
     Dates: start: 20111217, end: 20111218

REACTIONS (3)
  - Anaphylactoid reaction [None]
  - Dyspnoea [None]
  - Stridor [None]
